FAERS Safety Report 7086274-X (Version None)
Quarter: 2010Q4

REPORT INFORMATION
  Report Type: 
  Country: None (occurrence: None)
  Receive Date: 20101028
  Receipt Date: 20101018
  Transmission Date: 20110411
  Serious: Yes (Life-Threatening)
  Sender: FDA-Public Use
  Company Number: CV20100593

PATIENT

DRUGS (3)
  1. PROPOFOL [Suspect]
     Indication: INDUCTION OF ANAESTHESIA
     Dosage: 3 MG/KG, INTRAVENOUS, 8 MG/KG, INTRAVENOUS
     Route: 042
  2. REMIFENTANIL (REMIFENTANIL) (REMIFENTANIL) [Concomitant]
  3. PARENTERAL NUTRITION (TPN) (TPN) [Concomitant]

REACTIONS (1)
  - ACCIDENTAL OVERDOSE [None]
